FAERS Safety Report 15743885 (Version 2)
Quarter: 2019Q1

REPORT INFORMATION
  Report Type: Spontaneous
  Country: JO (occurrence: JO)
  Receive Date: 20181220
  Receipt Date: 20190130
  Transmission Date: 20190417
  Serious: Yes (Other)
  Sender: FDA-Public Use
  Company Number: JO-BEH-2018097710

PATIENT
  Sex: Male
  Weight: 2.29 kg

DRUGS (7)
  1. HUMAN IMMUNOGLOBULIN (NC) [Suspect]
     Active Substance: HUMAN IMMUNOGLOBULIN G
     Indication: RHESUS HAEMOLYTIC DISEASE OF NEWBORN
     Dosage: UNK
     Route: 064
  2. FOLIC ACID. [Concomitant]
     Active Substance: FOLIC ACID
     Route: 065
  3. RED BLOOD CELLS [Concomitant]
     Active Substance: HUMAN RED BLOOD CELL
     Dosage: 10 ML/KG, UNK
     Route: 065
  4. HUMAN IMMUNOGLOBULIN (NC) [Suspect]
     Active Substance: HUMAN IMMUNOGLOBULIN G
     Indication: PROPHYLAXIS
  5. ERYTHROPOIETIN [Concomitant]
     Active Substance: ERYTHROPOIETIN
     Route: 065
  6. IRON                               /00023503/ [Concomitant]
     Active Substance: IRON
     Route: 065
  7. RED BLOOD CELLS [Concomitant]
     Active Substance: HUMAN RED BLOOD CELL
     Dosage: 15 ML/KG, UNK
     Route: 065

REACTIONS (4)
  - Iron overload [Unknown]
  - Liver injury [Unknown]
  - Hyperbilirubinaemia [Unknown]
  - Cholestasis [Unknown]
